FAERS Safety Report 19715723 (Version 1)
Quarter: 2021Q3

REPORT INFORMATION
  Report Type: Spontaneous
  Country: DE (occurrence: DE)
  Receive Date: 20210818
  Receipt Date: 20210818
  Transmission Date: 20211014
  Serious: Yes (Death)
  Sender: FDA-Public Use
  Company Number: DE-009507513-2108DEU003234

PATIENT
  Age: 77 Year
  Sex: Male
  Weight: 61 kg

DRUGS (8)
  1. FOLSAEURE [Concomitant]
     Active Substance: FOLIC ACID
     Dosage: 0.4 MILLIGRAM
     Route: 048
     Dates: start: 20201202
  2. PEMBROLIZUMAB. [Suspect]
     Active Substance: PEMBROLIZUMAB
     Indication: LUNG ADENOCARCINOMA
     Dosage: 200 MILLIGRAM, ONCE (DAILY DOSE: 200 MG MILLGRAM(S) EVERY TOTAL)
     Route: 042
     Dates: start: 20210206, end: 20210206
  3. VITAMIN B12 [Concomitant]
     Active Substance: CYANOCOBALAMIN
     Dosage: 1000 MICROGRAM, ONCE (DAILY DOSE: 1000 ?G MICROGRAM(S) EVERY TOTAL)
     Route: 042
     Dates: start: 20201202, end: 20201202
  4. LACTULOSE. [Concomitant]
     Active Substance: LACTULOSE
     Indication: CONSTIPATION
     Dosage: 30 MILLILITER, QD (DAILY DOSE: 30 ML MILLILITRE(S) EVERY DAYS 3 SEPARATED DOSES)
     Route: 048
  5. PEMETREXED. [Concomitant]
     Active Substance: PEMETREXED
     Indication: LUNG ADENOCARCINOMA
     Dosage: 440 MILLIGRAM, ADMINISTRATION DECEMBER 7TH, 2020 AND JANUARY 5TH, 2021
     Route: 042
  6. METOPROLOL. [Concomitant]
     Active Substance: METOPROLOL
     Indication: HYPERTENSION
     Dosage: 23.75 MILLIGRAM, QD (DAILY DOSE: 23.75 MG MILLGRAM(S) EVERY DAYS)
     Route: 048
  7. CARBOPLATIN. [Concomitant]
     Active Substance: CARBOPLATIN
     Indication: LUNG ADENOCARCINOMA
     Dosage: 230 MILLIGRAM, ADMINISTRATION DECEMBER 7TH, 2020 AND JANUARY 5TH, 2021
     Route: 042
  8. NOVALGIN (METAMIZOLE SODIUM) [Concomitant]
     Active Substance: METAMIZOLE SODIUM
     Indication: PAIN
     Dosage: 2000 MILLIGRAM, QD (DAILY DOSE: 2000 MG MILLGRAM(S) EVERY DAYS 4 SEPARATED DOSES)
     Route: 048

REACTIONS (2)
  - Autoimmune hepatitis [Fatal]
  - Acute hepatic failure [Fatal]
